FAERS Safety Report 5649157-5 (Version None)
Quarter: 2008Q1

REPORT INFORMATION
  Report Type: 
  Country: None (occurrence: None)
  Receive Date: 20080304
  Receipt Date: 20080227
  Transmission Date: 20080703
  Serious: Yes (Hospitalization)
  Sender: FDA-Public Use
  Company Number: US-ALLERGAN-0802092US

PATIENT
  Sex: Female

DRUGS (7)
  1. SANCTURA [Suspect]
     Indication: HYPERTONIC BLADDER
     Dosage: 20 MG, BID
     Route: 048
  2. 4AP [Concomitant]
     Indication: MULTIPLE SCLEROSIS
  3. BETASERON [Concomitant]
     Indication: MULTIPLE SCLEROSIS
  4. VYTORIN [Concomitant]
     Indication: HYPERCHOLESTEROLAEMIA
  5. TRICOR [Concomitant]
     Indication: HYPERCHOLESTEROLAEMIA
  6. FOSAMAX [Concomitant]
     Indication: DRUG USE FOR UNKNOWN INDICATION
  7. CALCIUM [Concomitant]

REACTIONS (6)
  - COLITIS [None]
  - CONSTIPATION [None]
  - DIARRHOEA [None]
  - DRY MOUTH [None]
  - DRY SKIN [None]
  - RECTAL HAEMORRHAGE [None]
